FAERS Safety Report 12248261 (Version 2)
Quarter: 2016Q2

REPORT INFORMATION
  Report Type: Report from Study
  Country: IT (occurrence: IT)
  Receive Date: 20160408
  Receipt Date: 20160608
  Transmission Date: 20160815
  Serious: Yes (Other)
  Sender: FDA-Public Use
  Company Number: IT-ACCORD-039393

PATIENT
  Age: 106 Month
  Sex: Male

DRUGS (12)
  1. RITUXIMAB [Suspect]
     Active Substance: RITUXIMAB
     Indication: POST TRANSPLANT LYMPHOPROLIFERATIVE DISORDER
     Dosage: RECEIVED RITUXIMAB IN FIRST 4 CYCLES OF BLOCK AA AND BLOCK BB
  2. DEXAMETHASONE. [Suspect]
     Active Substance: DEXAMETHASONE
     Indication: POST TRANSPLANT LYMPHOPROLIFERATIVE DISORDER
     Dosage: BLOCK AA: 10 MG/M2?BLOCK BB: 10 MG/M2
  3. ETOPOSIDE. [Suspect]
     Active Substance: ETOPOSIDE
     Indication: POST TRANSPLANT LYMPHOPROLIFERATIVE DISORDER
     Dosage: BLOCK AA: 80 TO 100 MG/M2
  4. CYCLOPHOSPHAMIDE/CYCLOPHOSPHAMIDE  MONOHYDRATE [Suspect]
     Active Substance: CYCLOPHOSPHAMIDE
     Indication: POST TRANSPLANT LYMPHOPROLIFERATIVE DISORDER
     Dosage: 750 MG/M2 (FCD-R REGIMEN),?FROM 160 TO 200 MG/M2 DAILY
  5. DOXORUBICIN [Suspect]
     Active Substance: DOXORUBICIN
     Indication: POST TRANSPLANT LYMPHOPROLIFERATIVE DISORDER
  6. VINCRISTINE [Suspect]
     Active Substance: VINCRISTINE
     Indication: POST TRANSPLANT LYMPHOPROLIFERATIVE DISORDER
     Dosage: BLOCK AA:1.5 MG/M2?BLOCK BB:1.5 MG/M2
  7. FLUDARABINE/FLUDARABINE PHOSPHATE [Suspect]
     Active Substance: FLUDARABINE PHOSPHATE
     Indication: POST TRANSPLANT LYMPHOPROLIFERATIVE DISORDER
  8. CYTARABINE/CYTARABINE HYDROCHLORIDE/CYTARABINE OCFOSFATE [Suspect]
     Active Substance: CYTARABINE
     Indication: POST TRANSPLANT LYMPHOPROLIFERATIVE DISORDER
     Dosage: BLOCK AA: 120 TO 150 MG/M2 EVERY 12 HOURS
  9. METHYLPREDNISOLONE. [Suspect]
     Active Substance: METHYLPREDNISOLONE
     Indication: POST TRANSPLANT LYMPHOPROLIFERATIVE DISORDER
     Route: 037
  10. DAUNORUBICIN [Suspect]
     Active Substance: DAUNORUBICIN
     Indication: POST TRANSPLANT LYMPHOPROLIFERATIVE DISORDER
     Dosage: 20 TO 25 MG/M2 DAILY
  11. METHOTREXATE [Suspect]
     Active Substance: METHOTREXATE
     Indication: POST TRANSPLANT LYMPHOPROLIFERATIVE DISORDER
     Dosage: BLOCK AA: 1.5 TO 3 G/M2?BLOCK BB: 1.5 TO 3 G/M2.?ALSO RECEIVED INTRATHECAL METHOTREXATE
  12. IFOSFAMIDE. [Suspect]
     Active Substance: IFOSFAMIDE
     Indication: POST TRANSPLANT LYMPHOPROLIFERATIVE DISORDER
     Dosage: BLOCK AA: 600 TO 800 MG/M2 DAILY

REACTIONS (1)
  - Pneumonia [Unknown]
